FAERS Safety Report 10269525 (Version 1)
Quarter: 2014Q3

REPORT INFORMATION
  Report Type: Spontaneous
  Country: FR (occurrence: FR)
  Receive Date: 20140701
  Receipt Date: 20140701
  Transmission Date: 20150326
  Serious: Yes (Other)
  Sender: FDA-Public Use
  Company Number: FR-MERCK-1406FRA012660

PATIENT
  Age: 4 Year
  Sex: Female
  Weight: 18 kg

DRUGS (8)
  1. INEXIUM (ESOMEPRAZOLE MAGNESIUM) [Concomitant]
  2. DRIPTANE [Concomitant]
     Active Substance: OXYBUTYNIN
  3. MESTINON [Concomitant]
     Active Substance: PYRIDOSTIGMINE BROMIDE
  4. BACTRIM [Concomitant]
     Active Substance: SULFAMETHOXAZOLE\TRIMETHOPRIM
  5. DEPAKINE [Concomitant]
     Active Substance: VALPROATE SODIUM
  6. PROGLICEM [Suspect]
     Active Substance: DIAZOXIDE
     Indication: HYPOGLYCAEMIA
     Dosage: UNK
     Dates: start: 20140514, end: 20140528
  7. SCOPODERM TTS [Concomitant]
     Active Substance: SCOPOLAMINE
  8. COLIMYCINE (COLISTIMETHATE SODIUM) [Concomitant]

REACTIONS (1)
  - Vascular purpura [Recovered/Resolved]

NARRATIVE: CASE EVENT DATE: 20140526
